FAERS Safety Report 5314268-0 (Version None)
Quarter: 2007Q2

REPORT INFORMATION
  Report Type: 
  Country: None (occurrence: None)
  Receive Date: 20070425
  Receipt Date: 20070424
  Transmission Date: 20071010
  Serious: Yes (Death, Other)
  Sender: FDA-Public Use
  Company Number: 0701-034

PATIENT
  Sex: 0

DRUGS (1)
  1. ALBUTEROL SULATE [Suspect]

REACTIONS (4)
  - BURKHOLDERIA CEPACIA INFECTION [None]
  - PNEUMONIA [None]
  - THERAPEUTIC PRODUCT CONTAMINATION [None]
  - WRONG TECHNIQUE IN DRUG USAGE PROCESS [None]
